FAERS Safety Report 25372187 (Version 2)
Quarter: 2025Q2

REPORT INFORMATION
  Report Type: Report from Study
  Country: CL (occurrence: CL)
  Receive Date: 20250529
  Receipt Date: 20250604
  Transmission Date: 20250716
  Serious: Yes (Hospitalization, Disabling, Other)
  Sender: NOVO NORDISK
  Company Number: CL-NOVOPROD-1408842

PATIENT
  Age: 76 Year
  Sex: Female
  Weight: 70 kg

DRUGS (8)
  1. CARVEDILOL [Concomitant]
     Active Substance: CARVEDILOL
     Indication: Hypertension
  2. NEUROBIONTA [Concomitant]
  3. B-ZINC [Concomitant]
  4. INSULATARD NPH HUMAN [Suspect]
     Active Substance: INSULIN HUMAN
     Route: 058
     Dates: start: 202504
  5. INSULATARD NPH HUMAN [Suspect]
     Active Substance: INSULIN HUMAN
     Indication: Diabetes mellitus
     Route: 058
     Dates: start: 2015
  6. NOVORAPID [Suspect]
     Active Substance: INSULIN ASPART
     Indication: Diabetes mellitus
     Route: 058
     Dates: start: 2015
  7. NOVORAPID [Suspect]
     Active Substance: INSULIN ASPART
     Route: 058
     Dates: start: 202504
  8. LOSARTAN [Concomitant]
     Active Substance: LOSARTAN
     Indication: Hypertension

REACTIONS (17)
  - Myocardial infarction [Recovered/Resolved]
  - Oedema peripheral [Recovered/Resolved]
  - Diabetic neuropathy [Not Recovered/Not Resolved]
  - Liver injury [Not Recovered/Not Resolved]
  - Nephrolithiasis [Not Recovered/Not Resolved]
  - Wheelchair user [Not Recovered/Not Resolved]
  - Lower limb fracture [Recovered/Resolved]
  - Fall [Unknown]
  - Femur fracture [Recovered/Resolved]
  - Ankle fracture [Recovered/Resolved]
  - Senile dementia [Not Recovered/Not Resolved]
  - Epilepsy [Not Recovered/Not Resolved]
  - Hyperglycaemia [Recovered/Resolved]
  - Surgery [Unknown]
  - Diabetic retinopathy [Unknown]
  - Condition aggravated [Unknown]
  - Infection [Not Recovered/Not Resolved]

NARRATIVE: CASE EVENT DATE: 20150101
